FAERS Safety Report 12344850 (Version 3)
Quarter: 2016Q3

REPORT INFORMATION
  Report Type: Spontaneous
  Country: US (occurrence: US)
  Receive Date: 20160507
  Receipt Date: 20160921
  Transmission Date: 20161109
  Serious: Yes (Other)
  Sender: FDA-Public Use
  Company Number: US-JNJFOC-20160416167

PATIENT
  Age: 54 Year

DRUGS (2)
  1. XARELTO [Suspect]
     Active Substance: RIVAROXABAN
     Indication: THROMBOSIS
     Dosage: 10-20 MG APPROXIMATELY
     Route: 048
     Dates: start: 20130301, end: 20130420
  2. XARELTO [Suspect]
     Active Substance: RIVAROXABAN
     Indication: HAEMORRHAGE
     Dosage: 10-20 MG APPROXIMATELY
     Route: 048
     Dates: start: 20130301, end: 20130420

REACTIONS (1)
  - Internal haemorrhage [Unknown]

NARRATIVE: CASE EVENT DATE: 20130420
